FAERS Safety Report 24375733 (Version 1)
Quarter: 2024Q3

REPORT INFORMATION
  Report Type: Spontaneous
  Country: PT (occurrence: PT)
  Receive Date: 20240928
  Receipt Date: 20240928
  Transmission Date: 20241017
  Serious: Yes (Disabling)
  Sender: ABBVIE
  Company Number: None

PATIENT
  Sex: Female

DRUGS (5)
  1. ESCITALOPRAM [Suspect]
     Active Substance: ESCITALOPRAM OXALATE
     Indication: Depression
     Dosage: 10MG 1X A DAY, AT BREAKFAST
     Route: 048
  2. VENLAFAXINE HYDROCHLORIDE [Suspect]
     Active Substance: VENLAFAXINE HYDROCHLORIDE
     Indication: Depression
     Dosage: 150MG, 1X DAILY, AT BREAKFAST
     Route: 048
     Dates: start: 20180212, end: 20240302
  3. BRINTELLIX [Suspect]
     Active Substance: VORTIOXETINE HYDROBROMIDE
     Indication: Depression
     Dosage: 10MG, 1X A DAY, AT BREAKFAST
     Route: 048
  4. MIRTAZAPINE [Suspect]
     Active Substance: MIRTAZAPINE
     Indication: Depression
     Dosage: 1X A DAY, AT NIGHT
     Route: 048
     Dates: start: 20180212, end: 20200420
  5. FLUOXETINE HYDROCHLORIDE [Suspect]
     Active Substance: FLUOXETINE HYDROCHLORIDE
     Indication: Depression
     Dosage: 20MG 1X DAY, AT BREAKFAST
     Route: 048

REACTIONS (2)
  - Muscle rupture [Not Recovered/Not Resolved]
  - Tendon rupture [Not Recovered/Not Resolved]

NARRATIVE: CASE EVENT DATE: 20130321
